FAERS Safety Report 15597097 (Version 1)
Quarter: 2018Q4

REPORT INFORMATION
  Report Type: Spontaneous
  Country: US (occurrence: US)
  Receive Date: 20181102
  Receipt Date: 20181102
  Transmission Date: 20190205
  Serious: No
  Sender: FDA-Public Use
  Company Number: None

PATIENT
  Age: 9 Year
  Sex: Male
  Weight: 46.72 kg

DRUGS (1)
  1. ISOTRETINOIN. [Suspect]
     Active Substance: ISOTRETINOIN
     Dates: end: 20130929

REACTIONS (3)
  - Metastatic neoplasm [None]
  - Brain stem glioma [None]
  - Glioblastoma multiforme [None]

NARRATIVE: CASE EVENT DATE: 20171115
